APPROVED DRUG PRODUCT: LEVONORGESTREL
Active Ingredient: LEVONORGESTREL
Strength: 75MG/IMPLANT
Dosage Form/Route: IMPLANT;IMPLANTATION
Application: N020627 | Product #001
Applicant: WYETH PHARMACEUTICALS INC
Approved: Aug 15, 1996 | RLD: No | RS: No | Type: DISCN